FAERS Safety Report 18900010 (Version 2)
Quarter: 2021Q1

REPORT INFORMATION
  Report Type: Spontaneous
  Country: US (occurrence: US)
  Receive Date: 20210216
  Receipt Date: 20210306
  Transmission Date: 20210420
  Serious: Yes (Other)
  Sender: FDA-Public Use
  Company Number: US-ROCHE-2769415

PATIENT
  Sex: Female

DRUGS (10)
  1. YERVOY [Concomitant]
     Active Substance: IPILIMUMAB
  2. LYNPARZA [Concomitant]
     Active Substance: OLAPARIB
  3. DOXIL [Concomitant]
     Active Substance: DOXORUBICIN HYDROCHLORIDE
     Dates: start: 202102
  4. XELODA [Suspect]
     Active Substance: CAPECITABINE
     Indication: BREAST CANCER METASTATIC
     Route: 048
     Dates: start: 201601, end: 201703
  5. ERIBULIN [Concomitant]
     Active Substance: ERIBULIN
  6. IBRANCE [Concomitant]
     Active Substance: PALBOCICLIB
  7. CARBOPLATIN. [Concomitant]
     Active Substance: CARBOPLATIN
  8. CYTOXAN [Concomitant]
     Active Substance: CYCLOPHOSPHAMIDE
  9. OPDIVO [Concomitant]
     Active Substance: NIVOLUMAB
  10. TAXOTERE [Concomitant]
     Active Substance: DOCETAXEL

REACTIONS (4)
  - Emotional distress [Unknown]
  - Gait disturbance [Unknown]
  - Bone pain [Unknown]
  - Metastases to central nervous system [Not Recovered/Not Resolved]

NARRATIVE: CASE EVENT DATE: 2020
